FAERS Safety Report 7900015-2 (Version None)
Quarter: 2011Q4

REPORT INFORMATION
  Report Type: 
  Country: None (occurrence: None)
  Receive Date: 20111107
  Receipt Date: 20111102
  Transmission Date: 20120403
  Serious: Yes (Other)
  Sender: FDA-Public Use
  Company Number: CH-AMGEN-CHESP2011041467

PATIENT
  Age: 71 Year
  Sex: Female

DRUGS (3)
  1. PROLIA [Suspect]
     Indication: OSTEOPOROSIS POSTMENOPAUSAL
     Dosage: 60 MG, Q6MO
     Route: 058
     Dates: start: 20110603
  2. DICLOFENAC SODIUM [Concomitant]
     Dosage: 75 G, UNK
     Route: 048
     Dates: start: 20070101
  3. CALCIMAGON D3 [Concomitant]
     Indication: OSTEOPOROSIS
     Dosage: UNK UNK, QD
     Route: 048
     Dates: start: 20070101

REACTIONS (3)
  - TOOTH EXTRACTION [None]
  - ORAL MUCOSAL ERYTHEMA [None]
  - PAIN IN JAW [None]
